FAERS Safety Report 6146301-0 (Version None)
Quarter: 2009Q2

REPORT INFORMATION
  Report Type: 
  Country: None (occurrence: None)
  Receive Date: 20090407
  Receipt Date: 20090327
  Transmission Date: 20091009
  Serious: Yes (Other)
  Sender: FDA-Public Use
  Company Number: CA-JNJFOC-20090400289

PATIENT
  Sex: Female
  Weight: 58.06 kg

DRUGS (1)
  1. REMICADE [Suspect]
     Indication: DRUG USE FOR UNKNOWN INDICATION
     Dosage: 4TH OR 5TH DOSE
     Route: 042

REACTIONS (4)
  - CHEST PAIN [None]
  - HYPOAESTHESIA [None]
  - OROPHARYNGEAL PAIN [None]
  - RESTLESSNESS [None]
